FAERS Safety Report 5028565-X (Version None)
Quarter: 2006Q2

REPORT INFORMATION
  Report Type: 
  Country: None (occurrence: None)
  Receive Date: 20060615
  Receipt Date: 20060615
  Transmission Date: 20061013
  Serious: Yes (Hospitalization)
  Sender: FDA-Public Use
  Company Number: None

PATIENT
  Sex: Female
  Weight: 158.759 kg

DRUGS (12)
  1. GLEEVEC [Suspect]
     Indication: BREAST CANCER METASTATIC
     Dosage: 400 MG QD PO
     Route: 048
     Dates: start: 20051228
  2. TAXOTERE [Suspect]
     Dosage: 25 MG/M2 3 TIMES/MONTH IV
     Route: 042
     Dates: start: 20060611
  3. APAP TAB [Concomitant]
  4. DULCOLAX [Concomitant]
  5. CELEBREX [Concomitant]
  6. DILTIAZEM [Concomitant]
  7. COLACE [Concomitant]
  8. COUMADIN [Concomitant]
  9. MILK OF MAGNESIA TAB [Concomitant]
  10. OXYCODONE HCL [Concomitant]
  11. ZOMETA [Concomitant]
  12. EFFEXOR [Concomitant]

REACTIONS (5)
  - DIARRHOEA [None]
  - DYSPNOEA [None]
  - FATIGUE [None]
  - MALAISE [None]
  - PYREXIA [None]
